FAERS Safety Report 20734620 (Version 3)
Quarter: 2022Q3

REPORT INFORMATION
  Report Type: Report from Study
  Country: EG (occurrence: EG)
  Receive Date: 20220421
  Receipt Date: 20220629
  Transmission Date: 20221027
  Serious: Yes (Other)
  Sender: FDA-Public Use
  Company Number: EG-NOVARTISPH-NVSC2022EG086753

PATIENT
  Age: 38 Year
  Sex: Male

DRUGS (5)
  1. HYRIMOZ [Suspect]
     Active Substance: ADALIMUMAB-ADAZ
     Indication: Behcet^s syndrome
     Dosage: (ONE PRE-FILLED SYRINGE EVERY OTHER WEEK (ADMINISTERED 3 DOSES) THEN ONE PRE-FILLED SYRINGE EVERY WE
     Route: 065
     Dates: start: 20211204, end: 20220108
  2. INSULIN NOS [Concomitant]
     Active Substance: INSULIN NOS
     Indication: Diabetes mellitus
     Dosage: (30 AT BREAKFAST AND 15 AT DINNER)
     Route: 058
     Dates: start: 202105
  3. SOLUPRED [Concomitant]
     Indication: Immune system disorder
     Dosage: 2 DOSAGE FORM (2 TABLETS AT BREAKFAST)
     Route: 065
     Dates: start: 202105, end: 20220114
  4. SOLUPRED [Concomitant]
     Dosage: 3 DOSAGE FORM, QD
     Route: 065
     Dates: start: 20220114, end: 202204
  5. SOLUPRED [Concomitant]
     Dosage: 1 DOSAGE FORM, QD
     Route: 065
     Dates: start: 202204

REACTIONS (4)
  - Ulcer [Recovering/Resolving]
  - Off label use [Not Recovered/Not Resolved]
  - Product use issue [Recovered/Resolved]
  - Drug ineffective [Not Recovered/Not Resolved]

NARRATIVE: CASE EVENT DATE: 20220101
